FAERS Safety Report 15888238 (Version 2)
Quarter: 2019Q1

REPORT INFORMATION
  Report Type: Report from Study
  Country: BE (occurrence: BE)
  Receive Date: 20190130
  Receipt Date: 20190311
  Transmission Date: 20190417
  Serious: Yes (Death)
  Sender: FDA-Public Use
  Company Number: PHHY2019BE012566

PATIENT

DRUGS (1)
  1. TYVERB [Suspect]
     Active Substance: LAPATINIB
     Indication: COLON CANCER
     Route: 065
     Dates: start: 20171106

REACTIONS (2)
  - Malignant neoplasm progression [Fatal]
  - Colon cancer [Fatal]
